FAERS Safety Report 7949554-9 (Version None)
Quarter: 2011Q4

REPORT INFORMATION
  Report Type: 
  Country: None (occurrence: None)
  Receive Date: 20111123
  Receipt Date: 20111111
  Transmission Date: 20120403
  Serious: Yes (Hospitalization)
  Sender: FDA-Public Use
  Company Number: TPA2011A05627

PATIENT
  Age: 68 Year
  Sex: Male
  Weight: 108 kg

DRUGS (7)
  1. ASPIRIN [Concomitant]
  2. GLIPIZIDE ER (GLIPIZIDE) [Concomitant]
  3. ACTOS [Suspect]
     Indication: DIABETES MELLITUS
     Dosage: 30; 45 MG, 1 IN 1 D, PER ORAL
     Route: 048
     Dates: start: 20061126, end: 20110228
  4. ACTOS [Suspect]
     Indication: DIABETES MELLITUS
     Dosage: 30; 45 MG, 1 IN 1 D, PER ORAL
     Route: 048
     Dates: start: 20051122, end: 20060126
  5. SIMVASTATIN [Concomitant]
  6. ENALAPRIL MALEATE [Concomitant]
  7. METFORMIN HCL [Concomitant]

REACTIONS (1)
  - BLADDER TRANSITIONAL CELL CARCINOMA [None]
